FAERS Safety Report 8538737-5 (Version None)
Quarter: 2012Q3

REPORT INFORMATION
  Report Type: 
  Country: None (occurrence: None)
  Receive Date: 20120726
  Receipt Date: 20120712
  Transmission Date: 20120928
  Serious: Yes (Life-Threatening, Hospitalization)
  Sender: FDA-Public Use
  Company Number: ES-RANBAXY-2012R1-58139

PATIENT
  Age: 18 Year
  Sex: Male

DRUGS (1)
  1. FLECAINIDE ACETATE [Suspect]
     Indication: PRODUCT USED FOR UNKNOWN INDICATION
     Dosage: UNK
     Route: 065

REACTIONS (5)
  - SUICIDE ATTEMPT [None]
  - HYPOTENSION [None]
  - BUNDLE BRANCH BLOCK RIGHT [None]
  - SOMNOLENCE [None]
  - INTENTIONAL OVERDOSE [None]
